FAERS Safety Report 8815018 (Version 1)
Quarter: 2012Q4

REPORT INFORMATION
  Report Type: 
  Country: PL (occurrence: PL)
  Receive Date: 20120928
  Receipt Date: 20120928
  Transmission Date: 20130627
  Serious: Yes (Other)
  Sender: FDA-Public Use
  Company Number: PL-SANOFI-AVENTIS-2012SA067975

PATIENT
  Sex: Female

DRUGS (1)
  1. STILNOX [Suspect]
     Indication: DRUG USE FOR UNKNOWN INDICATION
     Dosage: dose and daily dose-5 to 7 tablets daily
     Route: 065

REACTIONS (7)
  - Sexual dysfunction [Unknown]
  - Drug dependence [Unknown]
  - Formication [Unknown]
  - Phobia [Unknown]
  - Excessive masturbation [Unknown]
  - Akathisia [Unknown]
  - Overdose [Unknown]
